FAERS Safety Report 21694598 (Version 1)
Quarter: 2022Q4

REPORT INFORMATION
  Report Type: Spontaneous
  Country: HR (occurrence: HR)
  Receive Date: 20221207
  Receipt Date: 20221207
  Transmission Date: 20230113
  Serious: Yes (Other)
  Sender: FDA-Public Use
  Company Number: None

PATIENT

DRUGS (3)
  1. NUCYNTA [Suspect]
     Active Substance: TAPENTADOL HYDROCHLORIDE
     Indication: Product used for unknown indication
     Dosage: 1300 MILLIGRAM, 1/DAY
     Route: 048
     Dates: start: 20221009, end: 20221009
  2. CYMBALTA [Suspect]
     Active Substance: DULOXETINE HYDROCHLORIDE
     Indication: Product used for unknown indication
     Dosage: 780 MILLIGRAM, 1/DAY
     Route: 048
     Dates: start: 20221009, end: 20221009
  3. PRADAXA [Suspect]
     Active Substance: DABIGATRAN ETEXILATE MESYLATE
     Indication: Product used for unknown indication
     Dosage: 750 MILLIGRAM, 1/DAY
     Route: 048
     Dates: start: 20221009, end: 20221009

REACTIONS (4)
  - Suicide attempt [Unknown]
  - Disorientation [Unknown]
  - Hallucination [Unknown]
  - Intentional overdose [Unknown]

NARRATIVE: CASE EVENT DATE: 20221009
